FAERS Safety Report 5940921-1 (Version None)
Quarter: 2008Q4

REPORT INFORMATION
  Report Type: 
  Country: None (occurrence: None)
  Receive Date: 20081031
  Receipt Date: 20081023
  Transmission Date: 20090506
  Serious: Yes (Hospitalization)
  Sender: FDA-Public Use
  Company Number: LTI2008A00292

PATIENT
  Age: 73 Year
  Sex: Male

DRUGS (10)
  1. LANSOPRAZOLE [Suspect]
     Indication: GASTROOESOPHAGEAL REFLUX DISEASE
     Dosage: 1 CAP. (1 CAP., 1 IN 1 D) ORAL
     Route: 048
  2. IBUPROFEN TABLETS [Suspect]
     Dosage: ORAL
     Route: 048
     Dates: end: 20080701
  3. PLAVIX [Suspect]
     Dosage: 75 MG (75 MG, 1 IN 1 D) ORAL
     Route: 048
  4. PRAVADUAL (PRAVASTATIN/ACETYLSALICYLIC ACID) (TABLETS) [Suspect]
     Dosage: 1 TAB. (1 TAB., 1 IN 1 D) ORAL
     Route: 048
  5. DOXAZOSIN MESYLATE [Suspect]
     Dosage: 1 DF (1 DF, 1 IN 1 D) ORAL
     Route: 048
  6. DIAMICRON (GLICLAZIDE) [Suspect]
     Indication: TYPE 2 DIABETES MELLITUS
     Dosage: ORAL
     Route: 048
  7. DIOSMINE (DIOSMIN) [Suspect]
     Dosage: ORAL
     Route: 048
  8. SPIRIVA [Suspect]
     Dosage: (18 MCG) RESPIRATORY (INHALATION)
     Route: 055
  9. TANAKAN (GINKGO BILOBA EXTRACT) (TABLETS) [Suspect]
     Dosage: (40 MG) ORAL
     Route: 048
  10. CIALIS [Suspect]
     Dosage: 1 DF (1 DF, AS REQUIRED) ORAL
     Route: 048

REACTIONS (5)
  - CYANOSIS [None]
  - DYSPNOEA [None]
  - HYPOXIA [None]
  - NAIL DISORDER [None]
  - PULMONARY FIBROSIS [None]
